FAERS Safety Report 9240021 (Version 2)
Quarter: 2013Q2

REPORT INFORMATION
  Report Type: Spontaneous
  Country: US (occurrence: None)
  Receive Date: 20130417
  Receipt Date: 20130430
  Transmission Date: 20140414
  Serious: Yes (Death)
  Sender: FDA-Public Use
  Company Number: JPI-P-031066

PATIENT
  Age: 73 Year
  Sex: Male

DRUGS (1)
  1. XYREM (500 MILLIGRAM/MILLILITERS, SOLUTION) (SODIUM OXYBATE) [Suspect]
     Indication: PRODUCT USED FOR UNKNOWN INDICATION
     Dosage: 7.5 GM (3.75 GM, 2 IN 1 D), ORAL
     Route: 048
     Dates: start: 20021213

REACTIONS (1)
  - Supranuclear palsy [None]
